FAERS Safety Report 7225774-6 (Version None)
Quarter: 2011Q1

REPORT INFORMATION
  Report Type: 
  Country: None (occurrence: None)
  Receive Date: 20110110
  Receipt Date: 20110110
  Transmission Date: 20110831
  Serious: Yes (Life-Threatening)
  Sender: FDA-Public Use
  Company Number: None

PATIENT
  Age: 49 Year
  Sex: Male
  Weight: 94.1 kg

DRUGS (1)
  1. DILAUDID [Suspect]

REACTIONS (2)
  - DYSPNOEA [None]
  - RESPIRATORY DEPRESSION [None]
